FAERS Safety Report 12342024 (Version 1)
Quarter: 2016Q2

REPORT INFORMATION
  Report Type: Spontaneous
  Country: US (occurrence: None)
  Receive Date: 20160505
  Receipt Date: 20160505
  Transmission Date: 20160815
  Serious: Yes (Other)
  Sender: FDA-Public Use
  Company Number: None

PATIENT
  Age: 81 Year
  Sex: Female

DRUGS (1)
  1. UCERIS [Suspect]
     Active Substance: BUDESONIDE
     Dates: start: 201511

REACTIONS (3)
  - Swelling face [None]
  - Headache [None]
  - Joint swelling [None]

NARRATIVE: CASE EVENT DATE: 20160503
